FAERS Safety Report 22015526 (Version 1)
Quarter: 2023Q1

REPORT INFORMATION
  Report Type: Spontaneous
  Country: JP (occurrence: JP)
  Receive Date: 20230221
  Receipt Date: 20230221
  Transmission Date: 20230418
  Serious: Yes (Other)
  Sender: FDA-Public Use
  Company Number: JP-DSJP-DSJ-2023-106073

PATIENT
  Age: 62 Year
  Sex: Female

DRUGS (11)
  1. DENOSUMAB [Suspect]
     Active Substance: DENOSUMAB
     Indication: Metastases to bone
     Dosage: UNK
     Route: 065
     Dates: start: 201803
  2. PALBOCICLIB [Suspect]
     Active Substance: PALBOCICLIB
     Indication: Breast cancer recurrent
     Dosage: UNK
     Route: 065
     Dates: start: 201805
  3. PALBOCICLIB [Suspect]
     Active Substance: PALBOCICLIB
     Dosage: UNK
     Route: 065
     Dates: start: 2018
  4. PALBOCICLIB [Suspect]
     Active Substance: PALBOCICLIB
     Dosage: UNK
     Route: 065
     Dates: start: 2018
  5. ABEMACICLIB [Suspect]
     Active Substance: ABEMACICLIB
     Indication: Breast cancer recurrent
     Dosage: 300MG/DAY
     Route: 065
     Dates: start: 201902, end: 2019
  6. ABEMACICLIB [Suspect]
     Active Substance: ABEMACICLIB
     Dosage: 200MG/DAY
     Route: 065
     Dates: start: 201904, end: 2019
  7. ABEMACICLIB [Suspect]
     Active Substance: ABEMACICLIB
     Dosage: 100MG/DAY
     Route: 065
     Dates: start: 201907
  8. EXEMESTANE [Concomitant]
     Active Substance: EXEMESTANE
     Indication: Breast cancer recurrent
     Dosage: UNK
     Route: 065
     Dates: start: 201803, end: 2018
  9. OXYCODONE [Concomitant]
     Active Substance: OXYCODONE
     Indication: Cancer pain
     Dosage: UNK UNK, UNK
     Route: 048
  10. OXYCODONE [Concomitant]
     Active Substance: OXYCODONE
     Dosage: 30MG/DAY
     Route: 048
     Dates: start: 202005
  11. LETROZOLE [Concomitant]
     Active Substance: LETROZOLE
     Indication: Breast cancer recurrent
     Dosage: UNK
     Route: 065
     Dates: start: 201805

REACTIONS (8)
  - Neutrophil count decreased [Unknown]
  - Deep vein thrombosis [Unknown]
  - Parkinsonism [Unknown]
  - Depression [Unknown]
  - Anxiety [Unknown]
  - Pathological fracture [Unknown]
  - Radiation oesophagitis [Recovering/Resolving]
  - Neutrophil count decreased [Unknown]

NARRATIVE: CASE EVENT DATE: 20180101
